FAERS Safety Report 15477873 (Version 1)
Quarter: 2018Q4

REPORT INFORMATION
  Report Type: Spontaneous
  Country: US (occurrence: US)
  Receive Date: 20181002
  Receipt Date: 20181002
  Transmission Date: 20190205
  Serious: Yes (Life-Threatening, Hospitalization, Disabling)
  Sender: FDA-Public Use
  Company Number: None

PATIENT
  Age: 56 Year
  Sex: Male
  Weight: 94.5 kg

DRUGS (4)
  1. ELIQUIS [Suspect]
     Active Substance: APIXABAN
     Indication: DEEP VEIN THROMBOSIS
     Dosage: ?          QUANTITY:1 TABLET(S);?
     Route: 048
     Dates: start: 20180326, end: 20180402
  2. GABAPENTIN. [Concomitant]
     Active Substance: GABAPENTIN
  3. AMADILODAPINE [Concomitant]
  4. THYROID SUPPLEMENT [Concomitant]

REACTIONS (3)
  - Skin discolouration [None]
  - Contusion [None]
  - Dyspnoea [None]

NARRATIVE: CASE EVENT DATE: 20180326
